FAERS Safety Report 5632179-8 (Version None)
Quarter: 2008Q1

REPORT INFORMATION
  Report Type: 
  Country: None (occurrence: None)
  Receive Date: 20080220
  Receipt Date: 20080213
  Transmission Date: 20080703
  Serious: Yes (Other)
  Sender: FDA-Public Use
  Company Number: JP-AVENTIS-200810480JP

PATIENT
  Age: 71 Year
  Sex: Male

DRUGS (1)
  1. DOCETAXEL [Suspect]
     Route: 041

REACTIONS (1)
  - PANCREATITIS ACUTE [None]
